FAERS Safety Report 14390690 (Version 5)
Quarter: 2018Q2

REPORT INFORMATION
  Report Type: Report from Study
  Country: US (occurrence: US)
  Receive Date: 20180116
  Receipt Date: 20180430
  Transmission Date: 20180711
  Serious: Yes (Hospitalization)
  Sender: FDA-Public Use
  Company Number: US-GILEAD-2018-0315668

PATIENT
  Age: 43 Year
  Sex: Female

DRUGS (2)
  1. METOLAZONE. [Concomitant]
     Active Substance: METOLAZONE
  2. AMBRISENTAN [Suspect]
     Active Substance: AMBRISENTAN
     Indication: PULMONARY ARTERIAL HYPERTENSION
     Dosage: 10 MG, QD
     Route: 065
     Dates: start: 20160408

REACTIONS (5)
  - Lung disorder [Unknown]
  - Oxygen saturation decreased [Unknown]
  - Epistaxis [Not Recovered/Not Resolved]
  - Memory impairment [Unknown]
  - Product use issue [Not Recovered/Not Resolved]

NARRATIVE: CASE EVENT DATE: 201802
